FAERS Safety Report 9103859 (Version 1)
Quarter: 2013Q1

REPORT INFORMATION
  Report Type: Spontaneous
  Country: US (occurrence: US)
  Receive Date: 20130219
  Receipt Date: 20130219
  Transmission Date: 20140127
  Serious: Yes (Hospitalization)
  Sender: FDA-Public Use
  Company Number: US-PFIZER INC-2013057570

PATIENT
  Age: 45 Year
  Sex: Female

DRUGS (1)
  1. DEXAMETHASONE SODIUM PHOSPHATE [Suspect]
     Indication: ADDISON^S DISEASE
     Dosage: 4 MG, 4X/DAY

REACTIONS (1)
  - Diabetic ketoacidosis [Unknown]
